FAERS Safety Report 21604512 (Version 1)
Quarter: 2022Q4

REPORT INFORMATION
  Report Type: Spontaneous
  Country: FR (occurrence: FR)
  Receive Date: 20221116
  Receipt Date: 20221116
  Transmission Date: 20230112
  Serious: Yes (Hospitalization, Other)
  Sender: FDA-Public Use
  Company Number: None

PATIENT
  Age: 75 Year
  Sex: Female
  Weight: 65 kg

DRUGS (6)
  1. ROPIVACAINE HYDROCHLORIDE ANHYDROUS [Suspect]
     Active Substance: ROPIVACAINE HYDROCHLORIDE ANHYDROUS
     Indication: Anaesthesia
     Dosage: 250 MG IN LOCO-REGIONAL ANESTHESIA FOR SUBGLUTEAL AND POPLITEAL SCIATICA//250 MG IN LOCO-REGIONAL AN
     Dates: start: 20221025, end: 20221025
  2. MEPIVACAINE HYDROCHLORIDE [Suspect]
     Active Substance: MEPIVACAINE HYDROCHLORIDE
     Indication: Anaesthesia
     Dosage: 250 MG IN LOCO-REGIONAL ANESTHESIA FOR SUBGLUTEAL AND POPLITEAL SCIATICA//250 MG IN LOCO-REGIONAL AN
     Dates: start: 20221025, end: 20221025
  3. RIVOTRIL 2,5 mg/ml, solution buvable en goutte/ drinkable solution in [Concomitant]
     Indication: Product used for unknown indication
  4. FORADIL [Concomitant]
     Active Substance: FORMOTEROL FUMARATE
     Indication: Product used for unknown indication
  5. PROPRANOLOL HYDROCHLORIDE [Concomitant]
     Active Substance: PROPRANOLOL HYDROCHLORIDE
     Indication: Product used for unknown indication
  6. KARDEGIC 160 mg, poudre pour solution buvable en sachet/powder for dri [Concomitant]
     Indication: Product used for unknown indication

REACTIONS (3)
  - Motor dysfunction [Recovering/Resolving]
  - Dysarthria [Recovering/Resolving]
  - Neurotoxicity [Recovering/Resolving]

NARRATIVE: CASE EVENT DATE: 20221025
